FAERS Safety Report 9380860 (Version 2)
Quarter: 2013Q3

REPORT INFORMATION
  Report Type: Spontaneous
  Country: US (occurrence: US)
  Receive Date: 20130703
  Receipt Date: 20130724
  Transmission Date: 20140515
  Serious: No
  Sender: FDA-Public Use
  Company Number: US-009507513-1306USA003731

PATIENT
  Sex: Female
  Weight: 103.86 kg

DRUGS (2)
  1. IMPLANON [Suspect]
     Indication: CONTRACEPTION
     Dosage: UNK
     Route: 059
     Dates: start: 20120524, end: 20120524
  2. NORCO [Concomitant]
     Dosage: UNK

REACTIONS (3)
  - Device kink [Unknown]
  - Product quality issue [Unknown]
  - No adverse event [Unknown]
